FAERS Safety Report 5685395-3 (Version None)
Quarter: 2008Q1

REPORT INFORMATION
  Report Type: 
  Country: None (occurrence: None)
  Receive Date: 20080328
  Receipt Date: 20080318
  Transmission Date: 20080703
  Serious: Yes (Other)
  Sender: FDA-Public Use
  Company Number: CA-PFIZER INC-2008025996

PATIENT
  Age: 62 Year
  Sex: Female

DRUGS (8)
  1. CHAMPIX [Suspect]
     Indication: SMOKING CESSATION THERAPY
     Route: 048
  2. CALCIUM [Concomitant]
     Route: 048
  3. ASAPHEN [Concomitant]
     Route: 048
  4. HYDRA-ZIDE [Concomitant]
     Route: 048
  5. NAPROXEN [Concomitant]
     Route: 048
  6. VENTOLIN [Concomitant]
  7. CLONAZEPAM [Concomitant]
     Route: 048
  8. OXEZE [Concomitant]

REACTIONS (3)
  - RETINAL DETACHMENT [None]
  - VISION BLURRED [None]
  - VISUAL ACUITY REDUCED [None]
